FAERS Safety Report 5082400-2 (Version None)
Quarter: 2006Q3

REPORT INFORMATION
  Report Type: 
  Country: None (occurrence: None)
  Receive Date: 20060817
  Receipt Date: 20060816
  Transmission Date: 20061208
  Serious: Yes (Hospitalization, Disabling, Other)
  Sender: FDA-Public Use
  Company Number: US-GLAXOSMITHKLINE-A0616943A

PATIENT
  Age: 92 Year
  Sex: Female

DRUGS (7)
  1. REQUIP [Suspect]
     Indication: MYOCLONUS
     Dosage: 1MG AT NIGHT
     Route: 048
     Dates: start: 20060810, end: 20060812
  2. ATENOLOL [Concomitant]
  3. PAXIL [Concomitant]
  4. NEXIUM [Concomitant]
  5. ACTONEL [Concomitant]
  6. CALCIUM GLUCONATE [Concomitant]
  7. ACETAMINOPHEN [Concomitant]

REACTIONS (5)
  - ARTHRALGIA [None]
  - ASTHENIA [None]
  - MUSCULOSKELETAL PAIN [None]
  - NECK PAIN [None]
  - PAIN IN EXTREMITY [None]
